FAERS Safety Report 8440335 (Version 2)
Quarter: 2013Q1

REPORT INFORMATION
  Report Type: Spontaneous
  Country: US (occurrence: US)
  Receive Date: 20120305
  Receipt Date: 20130228
  Transmission Date: 20140127
  Serious: Yes (Hospitalization)
  Sender: FDA-Public Use
  Company Number: US-BAYER-2012-018896

PATIENT
  Age: 19 Year
  Sex: Female

DRUGS (5)
  1. OCELLA [Suspect]
     Indication: CONTRACEPTION
     Route: 048
  2. YASMIN [Suspect]
     Dosage: UNK
  3. YAZ [Suspect]
  4. GIANVI [Suspect]
  5. ALBUTEROL [Concomitant]

REACTIONS (5)
  - Pulmonary embolism [None]
  - Injury [None]
  - Pain [None]
  - Emotional distress [None]
  - Pain [None]
